FAERS Safety Report 9011708 (Version 4)
Quarter: 2013Q1

REPORT INFORMATION
  Report Type: Spontaneous
  Country: SE (occurrence: SE)
  Receive Date: 20130107
  Receipt Date: 20130311
  Transmission Date: 20140127
  Serious: Yes (Hospitalization)
  Sender: FDA-Public Use
  Company Number: SE-ROCHE-1176596

PATIENT
  Age: 76 Year
  Sex: Female

DRUGS (2)
  1. HERCEPTIN [Suspect]
     Indication: BREAST CANCER
     Route: 065
     Dates: start: 20120925, end: 20120925
  2. PACLITAXEL [Suspect]
     Indication: BREAST CANCER
     Route: 065
     Dates: start: 20120925, end: 20120925

REACTIONS (3)
  - Chest discomfort [Recovered/Resolved]
  - Cardiomyopathy [Recovered/Resolved]
  - Dyspnoea [Recovered/Resolved]
